FAERS Safety Report 7819507-X (Version None)
Quarter: 2011Q4

REPORT INFORMATION
  Report Type: 
  Country: None (occurrence: None)
  Receive Date: 20111018
  Receipt Date: 20100805
  Transmission Date: 20120403
  Serious: No
  Sender: FDA-Public Use
  Company Number: US-ASTRAZENECA-2010SE36900

PATIENT
  Sex: Male

DRUGS (2)
  1. SYMBICORT [Suspect]
     Dosage: AT GREATER 2 PUFFS BID
     Route: 055
     Dates: end: 20100101
  2. SYMBICORT [Suspect]
     Indication: ASTHMA
     Dosage: 2 PUFFS BID
     Route: 055
     Dates: end: 20100101

REACTIONS (2)
  - RASH [None]
  - INCORRECT DOSE ADMINISTERED [None]
